FAERS Safety Report 15954465 (Version 1)
Quarter: 2019Q1

REPORT INFORMATION
  Report Type: Report from Study
  Country: ES (occurrence: ES)
  Receive Date: 20190212
  Receipt Date: 20190212
  Transmission Date: 20190417
  Serious: Yes (Death)
  Sender: FDA-Public Use
  Company Number: ES-MYLANLABS-2019M1011926

PATIENT
  Age: 74 Year
  Sex: Female

DRUGS (7)
  1. TAZOCEL [Suspect]
     Active Substance: PIPERACILLIN SODIUM\TAZOBACTAM SODIUM
     Indication: BACTERAEMIA
     Dosage: UNK
     Route: 042
     Dates: start: 20151102, end: 20151211
  2. METAMIZOL                          /06276701/ [Suspect]
     Active Substance: METAMIZOLE
     Indication: PAIN
     Dosage: 2 GR, 3 VECES AL S?A
     Route: 042
     Dates: start: 20151208, end: 20151217
  3. FLUCONAZOL [Suspect]
     Active Substance: FLUCONAZOLE
     Indication: PRODUCT USED FOR UNKNOWN INDICATION
     Dosage: 200MG, 1 VEZ AL D?A
     Route: 042
     Dates: start: 20151130, end: 20151211
  4. MEROPENEM. [Suspect]
     Active Substance: MEROPENEM
     Indication: BACTERAEMIA
     Dosage: 1GR, 3 VECES AL D?A
     Route: 042
     Dates: start: 20151119, end: 20151211
  5. VANCOMICINA                        /00314401/ [Suspect]
     Active Substance: VANCOMYCIN
     Indication: BACTERAEMIA
     Dosage: 1 GR, 2 VECES AL D?A
     Route: 042
     Dates: start: 20151117, end: 20151211
  6. ERITROMICINA                       /00020901/ [Suspect]
     Active Substance: ERYTHROMYCIN
     Indication: BACTERAEMIA
     Dosage: UNK
     Route: 042
     Dates: start: 20151201, end: 20151222
  7. MIRTAZAPINE. [Suspect]
     Active Substance: MIRTAZAPINE
     Indication: PRODUCT USED FOR UNKNOWN INDICATION
     Dosage: UNK
     Route: 048
     Dates: start: 201512, end: 20151217

REACTIONS (1)
  - Toxic epidermal necrolysis [Fatal]

NARRATIVE: CASE EVENT DATE: 20151214
